FAERS Safety Report 9711559 (Version 1)
Quarter: 2013Q4

REPORT INFORMATION
  Report Type: Spontaneous
  Country: US (occurrence: US)
  Receive Date: 20131126
  Receipt Date: 20131126
  Transmission Date: 20140711
  Serious: No
  Sender: FDA-Public Use
  Company Number: US-BRISTOL-MYERS SQUIBB COMPANY-19080134

PATIENT
  Age: 50 Year
  Sex: Female

DRUGS (3)
  1. BYDUREON [Suspect]
     Dosage: THERAPY-4 TO 6 MNTHS AGO
  2. LANTUS [Concomitant]
     Indication: DIABETES MELLITUS
  3. GLYBURIDE + METFORMIN HCL [Concomitant]
     Indication: DIABETES MELLITUS

REACTIONS (1)
  - Injection site pain [Unknown]
